FAERS Safety Report 18772739 (Version 1)
Quarter: 2021Q1

REPORT INFORMATION
  Report Type: Spontaneous
  Country: TW (occurrence: TW)
  Receive Date: 20210122
  Receipt Date: 20210122
  Transmission Date: 20210419
  Serious: Yes (Other)
  Sender: FDA-Public Use
  Company Number: TW-SUN PHARMACEUTICAL INDUSTRIES LTD-2021RR-277065

PATIENT
  Age: 40 Year
  Sex: Male

DRUGS (12)
  1. CLOZAPINE. [Suspect]
     Active Substance: CLOZAPINE
     Indication: SCHIZOPHRENIA
     Dosage: 300 MILLIGRAM, DAILY
     Route: 065
  2. LORAZEPAM. [Suspect]
     Active Substance: LORAZEPAM
     Dosage: 6 MILLIGRAM, DAILY
     Route: 065
  3. LORAZEPAM. [Suspect]
     Active Substance: LORAZEPAM
     Dosage: 3 MILLIGRAM, DAILY
     Route: 065
  4. TRIHEXYPHENIDYL [Suspect]
     Active Substance: TRIHEXYPHENIDYL
     Indication: PSYCHOTIC SYMPTOM
     Dosage: 15 MILLIGRAM, DAILY
     Route: 065
  5. CLOTIAPINE [Suspect]
     Active Substance: CLOTHIAPINE
     Indication: PSYCHOTIC SYMPTOM
     Dosage: 80 MILLIGRAM, DAILY
     Route: 065
  6. HALOPERIDOL. [Suspect]
     Active Substance: HALOPERIDOL
     Indication: OCULOGYRIC CRISIS
     Dosage: UNK
     Route: 030
  7. LORAZEPAM. [Suspect]
     Active Substance: LORAZEPAM
     Indication: SCHIZOPHRENIA
     Dosage: 3 MILLIGRAM, DAILY
     Route: 065
  8. CLOZAPINE. [Suspect]
     Active Substance: CLOZAPINE
     Dosage: 450 MILLIGRAM, DAILY
     Route: 065
  9. CLOZAPINE. [Suspect]
     Active Substance: CLOZAPINE
     Dosage: 400 MILLIGRAM, DAILY
     Route: 065
  10. BIPERIDEN [Suspect]
     Active Substance: BIPERIDEN
     Indication: OCULOGYRIC CRISIS
     Dosage: UNK
     Route: 030
  11. LORAZEPAM. [Suspect]
     Active Substance: LORAZEPAM
     Indication: OCULOGYRIC CRISIS
     Dosage: UNK
     Route: 030
  12. TRIHEXYPHENIDYL [Suspect]
     Active Substance: TRIHEXYPHENIDYL
     Indication: OCULOGYRIC CRISIS

REACTIONS (8)
  - Delusion [Recovering/Resolving]
  - Catatonia [Recovering/Resolving]
  - Oculogyric crisis [Recovered/Resolved]
  - Psychiatric symptom [Recovering/Resolving]
  - Hallucination, visual [Recovering/Resolving]
  - Disease recurrence [Unknown]
  - Drug ineffective [Unknown]
  - Aggression [Recovering/Resolving]
